FAERS Safety Report 18544567 (Version 1)
Quarter: 2020Q4

REPORT INFORMATION
  Report Type: Spontaneous
  Country: JP (occurrence: JP)
  Receive Date: 20201125
  Receipt Date: 20201125
  Transmission Date: 20210114
  Serious: Yes (Other)
  Sender: FDA-Public Use
  Company Number: NVSJ2020JP011907

PATIENT
  Age: 67 Year
  Sex: Female

DRUGS (1)
  1. PAZOPANIB [Suspect]
     Active Substance: PAZOPANIB
     Indication: ANGIOSARCOMA
     Dosage: 600MG/DAY
     Route: 065

REACTIONS (2)
  - Drug intolerance [Unknown]
  - Gastrointestinal toxicity [Unknown]
